FAERS Safety Report 10182508 (Version 3)
Quarter: 2014Q3

REPORT INFORMATION
  Report Type: Spontaneous
  Country: US (occurrence: None)
  Receive Date: 20140516
  Receipt Date: 20140806
  Transmission Date: 20150326
  Serious: Yes (Congenital Anomaly, Other)
  Sender: FDA-Public Use
  Company Number: 2014AP002924

PATIENT
  Age: 0 Day
  Sex: Female

DRUGS (2)
  1. PAXIL [Suspect]
     Active Substance: PAROXETINE HYDROCHLORIDE
     Indication: FOETAL EXPOSURE DURING PREGNANCY
     Route: 064
     Dates: start: 2004, end: 2005
  2. BRETHINE (TERBUTALINE SULFATE) [Concomitant]

REACTIONS (9)
  - Precocious puberty [None]
  - Congenital genitourinary abnormality [None]
  - Premature baby [None]
  - Maternal drugs affecting foetus [None]
  - Arnold-Chiari malformation [None]
  - Genital labial adhesions [None]
  - Foetal exposure during pregnancy [None]
  - Caesarean section [None]
  - Headache [None]

NARRATIVE: CASE EVENT DATE: 20041119
